FAERS Safety Report 15808198 (Version 3)
Quarter: 2019Q1

REPORT INFORMATION
  Report Type: Report from Study
  Country: US (occurrence: US)
  Receive Date: 20190110
  Receipt Date: 20190212
  Transmission Date: 20190417
  Serious: Yes (Congenital Anomaly, Other)
  Sender: FDA-Public Use
  Company Number: US-GILEAD-2019-0383968

PATIENT
  Age: 0 Year
  Sex: Male
  Weight: 2.89 kg

DRUGS (4)
  1. ATAZANAVIR SULFATE. [Suspect]
     Active Substance: ATAZANAVIR SULFATE
     Indication: HIV INFECTION
     Dosage: 300 MG, QD
     Route: 064
     Dates: start: 20180521
  2. RITONAVIR. [Suspect]
     Active Substance: RITONAVIR
     Indication: HIV INFECTION
     Dosage: 100 MG, QD
     Route: 064
     Dates: start: 20180521
  3. ABACAVIR SULFATE;DOLUTEGRAVIR SODIUM;LAMIVUDINE [Suspect]
     Active Substance: ABACAVIR SULFATE\DOLUTEGRAVIR SODIUM\LAMIVUDINE
     Indication: HIV INFECTION
     Dosage: 1 DF, QD
     Route: 064
     Dates: end: 20180521
  4. EMTRICITABINE/TENOFOVIR DISOPROXIL FUMARATE [Suspect]
     Active Substance: EMTRICITABINE\TENOFOVIR DISOPROXIL FUMARATE
     Indication: HIV INFECTION
     Dosage: 1 DF, QD
     Route: 064
     Dates: start: 20180521

REACTIONS (6)
  - Kidney enlargement [Unknown]
  - Congenital central nervous system anomaly [Unknown]
  - Ventricular septal defect [Unknown]
  - Septum pellucidum agenesis [Unknown]
  - Foetal exposure during pregnancy [Recovered/Resolved]
  - Trisomy 21 [Not Recovered/Not Resolved]

NARRATIVE: CASE EVENT DATE: 20180521
